APPROVED DRUG PRODUCT: ALBUTEROL SULFATE
Active Ingredient: ALBUTEROL SULFATE
Strength: EQ 2MG BASE
Dosage Form/Route: TABLET;ORAL
Application: A210948 | Product #001 | TE Code: BX
Applicant: AIZANT DRUG RESEARCH SOLUTIONS PRIVATE LTD
Approved: Mar 15, 2019 | RLD: No | RS: No | Type: RX